FAERS Safety Report 5777211-6 (Version None)
Quarter: 2008Q2

REPORT INFORMATION
  Report Type: 
  Country: None (occurrence: None)
  Receive Date: 20080618
  Receipt Date: 20080605
  Transmission Date: 20081010
  Serious: Yes (Other)
  Sender: FDA-Public Use
  Company Number: US-ELI_LILLY_AND_COMPANY-US200806001249

PATIENT
  Age: 48 Year
  Sex: Female

DRUGS (4)
  1. CYMBALTA [Suspect]
     Dosage: 1 D/F, UNK
     Dates: start: 20050101
  2. HUMATROPE [Suspect]
     Indication: HYPOPITUITARISM
     Dosage: UNK, UNKNOWN
     Dates: start: 20040810, end: 20050101
  3. HUMATROPE [Suspect]
     Dosage: 0.4 MG, UNK 4 CLICKS
     Dates: start: 20050101
  4. POTASSIUM CHLORIDE [Concomitant]

REACTIONS (14)
  - BREAST ENLARGEMENT [None]
  - DISTURBANCE IN ATTENTION [None]
  - DRUG INEFFECTIVE [None]
  - DYSENTERY [None]
  - FLUID RETENTION [None]
  - HYPERHIDROSIS [None]
  - HYPERTENSION [None]
  - HYPOAESTHESIA [None]
  - PAIN IN EXTREMITY [None]
  - PARAESTHESIA [None]
  - SWELLING [None]
  - SYNCOPE [None]
  - VISION BLURRED [None]
  - WEIGHT INCREASED [None]
